FAERS Safety Report 23823274 (Version 2)
Quarter: 2024Q2

REPORT INFORMATION
  Report Type: Report from Study
  Country: US (occurrence: US)
  Receive Date: 20240507
  Receipt Date: 20240531
  Transmission Date: 20240716
  Serious: Yes (Death, Other)
  Sender: FDA-Public Use
  Company Number: US-ACADIA PHARMACEUTICALS INC.-ACA-2024-PIM-002172

PATIENT
  Age: 72 Year
  Sex: Male

DRUGS (7)
  1. NUPLAZID [Suspect]
     Active Substance: PIMAVANSERIN TARTRATE
     Indication: Parkinson^s disease
     Dosage: 34 MILLIGRAM, QD
     Route: 048
     Dates: start: 202307
  2. CLONAZEPAM [Concomitant]
     Active Substance: CLONAZEPAM
  3. AMANTADINE [Concomitant]
     Active Substance: AMANTADINE
  4. CARVEDILOL [Concomitant]
     Active Substance: CARVEDILOL
  5. ENTACAPONE [Concomitant]
     Active Substance: ENTACAPONE
  6. NEUPRO [Concomitant]
     Active Substance: ROTIGOTINE
  7. RASAGILINE [Concomitant]
     Active Substance: RASAGILINE\RASAGILINE MESYLATE

REACTIONS (2)
  - Parkinson^s disease psychosis [Recovered/Resolved]
  - Affective disorder [Recovered/Resolved]

NARRATIVE: CASE EVENT DATE: 20240201
